FAERS Safety Report 9060076 (Version 1)
Quarter: 2013Q1

REPORT INFORMATION
  Report Type: Spontaneous
  Country: US (occurrence: US)
  Receive Date: 20130212
  Receipt Date: 20130212
  Transmission Date: 20140127
  Serious: Yes (Hospitalization)
  Sender: FDA-Public Use
  Company Number: US-BAYER-2013-016473

PATIENT
  Age: 45 Year
  Sex: Female

DRUGS (3)
  1. YAZ [Suspect]
  2. DILANTIN [Concomitant]
     Indication: CONVULSION
  3. KEPPRA [Concomitant]
     Indication: CONVULSION

REACTIONS (2)
  - Superior sagittal sinus thrombosis [None]
  - Deep vein thrombosis [None]
